FAERS Safety Report 6801687-6 (Version None)
Quarter: 2010Q2

REPORT INFORMATION
  Report Type: 
  Country: None (occurrence: None)
  Receive Date: 20100629
  Receipt Date: 20100621
  Transmission Date: 20101027
  Serious: Yes (Other)
  Sender: FDA-Public Use
  Company Number: CA-BRISTOL-MYERS SQUIBB COMPANY-15158728

PATIENT
  Age: 21 Year
  Sex: Male

DRUGS (2)
  1. ARIPIPRAZOLE [Suspect]
     Dosage: 6 DAYS LATER DRUG WAS WITHDRAWN.
  2. CLOZAPINE [Interacting]
     Dosage: TAPERED TO 25MG/DAY OVER 14 DAYS

REACTIONS (6)
  - CONDITION AGGRAVATED [None]
  - DRUG INTERACTION [None]
  - MENTAL IMPAIRMENT [None]
  - OBSESSIVE-COMPULSIVE DISORDER [None]
  - PSYCHOTIC DISORDER [None]
  - TREATMENT FAILURE [None]
